FAERS Safety Report 26021234 (Version 1)
Quarter: 2025Q4

REPORT INFORMATION
  Report Type: Spontaneous
  Country: JP (occurrence: JP)
  Receive Date: 20251110
  Receipt Date: 20251110
  Transmission Date: 20260118
  Serious: Yes (Death)
  Sender: EISAI
  Company Number: JP-Eisai-202509912_LEN-HCC_P_1

PATIENT
  Age: 62 Year
  Sex: Male

DRUGS (1)
  1. LENVATINIB [Suspect]
     Active Substance: LENVATINIB
     Indication: Hepatocellular carcinoma
     Dosage: DOSE AND FREQUENCY WERE UNKNOWN
     Route: 048

REACTIONS (1)
  - Cardiac disorder [Fatal]
